FAERS Safety Report 8824387 (Version 3)
Quarter: 2013Q3

REPORT INFORMATION
  Report Type: Spontaneous
  Country: JP (occurrence: JP)
  Receive Date: 20121004
  Receipt Date: 20130930
  Transmission Date: 20140515
  Serious: Yes (Other)
  Sender: FDA-Public Use
  Company Number: JP-009507513-1210JPN001628

PATIENT
  Age: 69 Year
  Sex: Female
  Weight: 73 kg

DRUGS (4)
  1. BRIDION [Suspect]
     Indication: NEUROMUSCULAR BLOCKADE REVERSAL
     Dosage: 100 MG, QD
     Route: 042
     Dates: start: 20110816, end: 20110816
  2. ESLAX INTRAVENOUS 25MG/2.5ML [Concomitant]
     Indication: NEUROMUSCULAR BLOCKING THERAPY
     Dosage: DIVIDED DOSE FREQUENCY UNKNOWN
     Route: 042
     Dates: start: 20110816, end: 20110816
  3. PROPOFOL [Concomitant]
     Indication: ANAESTHESIA PROCEDURE
     Dosage: DIVIDED DOSE FREQUENCY UNKNOWN
     Route: 042
     Dates: start: 20110816, end: 20110816
  4. FENTANYL [Concomitant]
     Indication: ANAESTHESIA PROCEDURE
     Dosage: DIVIDED DOSE FREQUENCY UNKNOWN
     Route: 042
     Dates: start: 20110816, end: 20110816

REACTIONS (1)
  - Laryngospasm [Recovered/Resolved]
